FAERS Safety Report 12255472 (Version 1)
Quarter: 2016Q2

REPORT INFORMATION
  Report Type: Spontaneous
  Country: US (occurrence: US)
  Receive Date: 20160412
  Receipt Date: 20160412
  Transmission Date: 20160815
  Serious: Yes (Other)
  Sender: FDA-Public Use
  Company Number: US-BEH-2016060980

PATIENT
  Sex: Female
  Weight: 80 kg

DRUGS (18)
  1. AMLODIPINE [Concomitant]
     Active Substance: AMLODIPINE BESYLATE
  2. GLIPIZIDE. [Concomitant]
     Active Substance: GLIPIZIDE
  3. QUINAPRIL. [Concomitant]
     Active Substance: QUINAPRIL
  4. PROBIOTIC [Concomitant]
     Active Substance: PROBIOTICS NOS
  5. PILOCARPINE. [Concomitant]
     Active Substance: PILOCARPINE
  6. VITAMIN D2 [Concomitant]
     Active Substance: ERGOCALCIFEROL
  7. HIZENTRA [Suspect]
     Active Substance: HUMAN IMMUNOGLOBULIN G
     Indication: CONGENITAL HYPOGAMMAGLOBULINAEMIA
     Dosage: 10 GM 50ML VIAL
     Route: 058
  8. METFORMIN [Concomitant]
     Active Substance: METFORMIN HYDROCHLORIDE
  9. MULTIPLE VITAMINS [Concomitant]
     Active Substance: VITAMINS
  10. LUMIGAN [Concomitant]
     Active Substance: BIMATOPROST
  11. CITALOPRAM [Concomitant]
     Active Substance: CITALOPRAM HYDROBROMIDE
  12. DIPHENHYDRAMINE. [Concomitant]
     Active Substance: DIPHENHYDRAMINE
  13. EPIPEN [Concomitant]
     Active Substance: EPINEPHRINE
  14. ATORVASTATIN [Concomitant]
     Active Substance: ATORVASTATIN
  15. ACETAMINOPHEN. [Concomitant]
     Active Substance: ACETAMINOPHEN
  16. HIZENTRA [Suspect]
     Active Substance: HUMAN IMMUNOGLOBULIN G
     Indication: IMMUNODEFICIENCY COMMON VARIABLE
     Dosage: 10 GM 50ML VIAL
     Route: 058
  17. COLESTIPOL [Concomitant]
     Active Substance: COLESTIPOL
  18. ASPIRIN EC [Concomitant]
     Active Substance: ASPIRIN

REACTIONS (2)
  - Sinusitis [Unknown]
  - Sinus operation [Unknown]
